FAERS Safety Report 4601004-6 (Version None)
Quarter: 2005Q1

REPORT INFORMATION
  Report Type: 
  Country: None (occurrence: None)
  Receive Date: 20050307
  Receipt Date: 20050307
  Transmission Date: 20050727
  Serious: No
  Sender: FDA-Public Use
  Company Number: None

PATIENT
  Age: 48 Year
  Sex: Male
  Weight: 70.3075 kg

DRUGS (2)
  1. ZYPREXA [Suspect]
  2. ZYRTEC [Suspect]
     Indication: HYPERSENSITIVITY

REACTIONS (1)
  - MEDICATION ERROR [None]
